FAERS Safety Report 25702073 (Version 1)
Quarter: 2025Q3

REPORT INFORMATION
  Report Type: Report from Study
  Country: CA (occurrence: CA)
  Receive Date: 20250819
  Receipt Date: 20250819
  Transmission Date: 20251021
  Serious: Yes (Other)
  Sender: TAKEDA
  Company Number: CA-TAKEDA-2025TUS006609

PATIENT
  Sex: Female

DRUGS (6)
  1. VEDOLIZUMAB [Suspect]
     Active Substance: VEDOLIZUMAB
     Indication: Colitis ulcerative
  2. VEDOLIZUMAB [Suspect]
     Active Substance: VEDOLIZUMAB
  3. VEDOLIZUMAB [Suspect]
     Active Substance: VEDOLIZUMAB
  4. IRON [Concomitant]
     Active Substance: IRON
  5. TYLENOL [Concomitant]
     Active Substance: ACETAMINOPHEN
  6. ADVIL [Concomitant]
     Active Substance: IBUPROFEN

REACTIONS (4)
  - Colitis ulcerative [Unknown]
  - Frequent bowel movements [Recovering/Resolving]
  - Faeces soft [Recovering/Resolving]
  - Urinary tract infection [Unknown]
